FAERS Safety Report 7540897-X (Version None)
Quarter: 2011Q2

REPORT INFORMATION
  Report Type: 
  Country: None (occurrence: None)
  Receive Date: 20110610
  Receipt Date: 20110607
  Transmission Date: 20111010
  Serious: Yes (Other)
  Sender: FDA-Public Use
  Company Number: GB-PFIZER INC-2011127054

PATIENT
  Age: 31 Year
  Sex: Female
  Weight: 91.5 kg

DRUGS (5)
  1. TRAMADOL [Concomitant]
     Indication: BACK PAIN
     Dosage: 50 MG, UNK
  2. VARENICLINE TARTRATE [Suspect]
     Dosage: 1 MG, 2X/DAY
     Route: 048
     Dates: start: 20071031, end: 20080101
  3. PARACETAMOL [Concomitant]
     Indication: BACK PAIN
     Dosage: 500 MG, UNK
  4. VARENICLINE TARTRATE [Suspect]
     Indication: SMOKING CESSATION THERAPY
     Dosage: UNK
     Route: 048
     Dates: start: 20070327, end: 20070101
  5. CODEINE [Concomitant]
     Indication: BACK PAIN
     Dosage: 30 MG, UNK

REACTIONS (1)
  - ABORTION SPONTANEOUS [None]
